FAERS Safety Report 6163695-0 (Version None)
Quarter: 2009Q2

REPORT INFORMATION
  Report Type: 
  Country: None (occurrence: None)
  Receive Date: 20090420
  Receipt Date: 20090420
  Transmission Date: 20091009
  Serious: Yes (Other)
  Sender: FDA-Public Use
  Company Number: None

PATIENT
  Age: 61 Year
  Sex: Female
  Weight: 68.0396 kg

DRUGS (8)
  1. ACTONEL [Suspect]
     Indication: OSTEOPOROSIS
     Dosage: 1 PILLS 1 PILL FOR 2 DAYS PO ALMOST 6 MONTHS
     Route: 048
     Dates: start: 20071201, end: 20080501
  2. DIALINTIN [Concomitant]
  3. PROVERA [Concomitant]
  4. PREMARIN [Concomitant]
  5. RESTORIL [Concomitant]
  6. VICODIN ES [Concomitant]
  7. MORPHINE SULFATE [Concomitant]
  8. VITAMINS [Concomitant]

REACTIONS (26)
  - ABDOMINAL PAIN UPPER [None]
  - ARTHRALGIA [None]
  - ASTHENIA [None]
  - BACK PAIN [None]
  - BLOOD PRESSURE FLUCTUATION [None]
  - BLOOD PRESSURE INCREASED [None]
  - BONE PAIN [None]
  - CARDIAC DISORDER [None]
  - CHEST PAIN [None]
  - COUGH [None]
  - DIARRHOEA [None]
  - DYSPEPSIA [None]
  - DYSURIA [None]
  - EYE IRRITATION [None]
  - FEELING ABNORMAL [None]
  - FLATULENCE [None]
  - GASTROINTESTINAL PAIN [None]
  - HEADACHE [None]
  - INSOMNIA [None]
  - MUSCLE SPASMS [None]
  - NAUSEA [None]
  - NECK PAIN [None]
  - OCULAR HYPERAEMIA [None]
  - PAIN [None]
  - PAIN IN JAW [None]
  - VOMITING [None]
